FAERS Safety Report 9675554 (Version 1)
Quarter: 2013Q4

REPORT INFORMATION
  Report Type: Spontaneous
  Country: US (occurrence: US)
  Receive Date: 20131107
  Receipt Date: 20131107
  Transmission Date: 20140711
  Serious: No
  Sender: FDA-Public Use
  Company Number: US-009507513-1310USA013121

PATIENT
  Age: 23 Year
  Sex: Female
  Weight: 75.74 kg

DRUGS (1)
  1. NEXPLANON [Suspect]
     Indication: CONTRACEPTION
     Dosage: 1 DF, 3 YEAR IMPLANT
     Route: 059
     Dates: start: 20121130

REACTIONS (2)
  - Panic attack [Unknown]
  - Menorrhagia [Unknown]
